FAERS Safety Report 25632826 (Version 1)
Quarter: 2025Q3

REPORT INFORMATION
  Report Type: Spontaneous
  Country: US (occurrence: None)
  Receive Date: 20250731
  Receipt Date: 20250731
  Transmission Date: 20251020
  Serious: No
  Sender: FDA-CTU
  Company Number: None

PATIENT
  Age: 35 Year
  Sex: Female
  Weight: 77.9 kg

DRUGS (8)
  1. DUPIXENT [Suspect]
     Active Substance: DUPILUMAB
     Indication: Dermatitis atopic
     Dosage: 300 MG EVWERY 2 WEEKS SUBACUTANEOUS?
     Route: 058
     Dates: start: 20250402
  2. XOLAIR [Concomitant]
     Active Substance: OMALIZUMAB
     Dates: start: 20250225
  3. Dexlansoprazole 30 mg [Concomitant]
     Dates: start: 20250226
  4. CETIRIZINE [Concomitant]
     Active Substance: CETIRIZINE HYDROCHLORIDE
     Dates: start: 20240309
  5. FAMOTIDINE [Concomitant]
     Active Substance: FAMOTIDINE
     Dates: start: 20240329
  6. Pancrelipase (Creon) 5 capsules TID [Concomitant]
     Dates: start: 20230727
  7. Breo Ellipta 200-25 daily [Concomitant]
     Dates: start: 20241002
  8. Tiotropium 2 puffs daily [Concomitant]
     Dates: start: 20240329

REACTIONS (9)
  - Weight increased [None]
  - Abdominal distension [None]
  - Peripheral swelling [None]
  - Neuropathy peripheral [None]
  - Pain [None]
  - Pain [None]
  - Paraesthesia [None]
  - Gait disturbance [None]
  - Gait disturbance [None]

NARRATIVE: CASE EVENT DATE: 20250731
